FAERS Safety Report 23938870 (Version 2)
Quarter: 2024Q3

REPORT INFORMATION
  Report Type: Spontaneous
  Country: DE (occurrence: DE)
  Receive Date: 20240604
  Receipt Date: 20240721
  Transmission Date: 20241016
  Serious: Yes (Hospitalization, Other)
  Sender: MERCK
  Company Number: DE-009507513-2405DEU009373

PATIENT
  Age: 81 Year
  Sex: Male
  Weight: 75 kg

DRUGS (29)
  1. KEYTRUDA [Suspect]
     Active Substance: PEMBROLIZUMAB
     Indication: Bronchial carcinoma
     Dosage: 200 MILLIGRAM, Q3W
     Route: 042
     Dates: start: 20240328, end: 20240418
  2. KEYTRUDA [Suspect]
     Active Substance: PEMBROLIZUMAB
     Indication: Palliative care
  3. CARBOPLATIN [Suspect]
     Active Substance: CARBOPLATIN
     Indication: Bronchial carcinoma
     Dosage: 350 MG
     Dates: start: 202403, end: 20240418
  4. PEMETREXED [Suspect]
     Active Substance: PEMETREXED
     Indication: Bronchial carcinoma
     Dosage: UNK
     Dates: start: 202403, end: 20240418
  5. OXYCODONE HYDROCHLORIDE [Concomitant]
     Active Substance: OXYCODONE HYDROCHLORIDE
     Dosage: UNK, PRN (ON DEMAND)
     Route: 048
  6. NALOXONE HYDROCHLORIDE\OXYCODONE HYDROCHLORIDE [Concomitant]
     Active Substance: NALOXONE HYDROCHLORIDE\OXYCODONE HYDROCHLORIDE
     Dosage: 20 MILLIGRAM
     Route: 048
  7. NALOXONE HYDROCHLORIDE\OXYCODONE HYDROCHLORIDE [Concomitant]
     Active Substance: NALOXONE HYDROCHLORIDE\OXYCODONE HYDROCHLORIDE
     Dosage: 10 MILLIGRAM
     Route: 048
  8. NALOXONE HYDROCHLORIDE\OXYCODONE HYDROCHLORIDE [Concomitant]
     Active Substance: NALOXONE HYDROCHLORIDE\OXYCODONE HYDROCHLORIDE
     Dosage: 5 MILLIGRAM
     Route: 048
  9. NALOXONE HYDROCHLORIDE\OXYCODONE HYDROCHLORIDE [Concomitant]
     Active Substance: NALOXONE HYDROCHLORIDE\OXYCODONE HYDROCHLORIDE
     Dosage: 2.5 MILLIGRAM
     Route: 048
  10. PREGABALIN [Concomitant]
     Active Substance: PREGABALIN
     Dosage: IF NECESSARY INCREASE TO 50MG
     Route: 048
  11. METAMIZOLE [Concomitant]
     Active Substance: METAMIZOLE
     Dosage: ORAL DROPS
     Route: 048
  12. FOLIC ACID [Concomitant]
     Active Substance: FOLIC ACID
     Dosage: 5 MILLIGRAM UNTIL THE END OF PACKAGE
     Route: 048
  13. VITAMIN B12 [Concomitant]
     Active Substance: CYANOCOBALAMIN
     Dosage: 1000 MICROGRAM; EVERY 3 MONTHS
  14. PANTOPRAZOL AAA [Concomitant]
     Route: 048
  15. ALLOPURINOL [Concomitant]
     Active Substance: ALLOPURINOL
     Dosage: UNK
     Route: 048
  16. SIMVASTATIN [Concomitant]
     Active Substance: SIMVASTATIN
     Route: 048
  17. HCT RATIOPHARM [Concomitant]
     Route: 048
  18. POLYETHYLENE GLYCOL 3350\POTASSIUM CHLORIDE\SODIUM BICARBONATE\SODIUM [Concomitant]
     Active Substance: POLYETHYLENE GLYCOL 3350\POTASSIUM CHLORIDE\SODIUM BICARBONATE\SODIUM CHLORIDE
     Route: 048
  19. FORTIMEL COMPACT [Concomitant]
  20. MCP STADA [Concomitant]
     Route: 048
  21. GRANISETRON STADA [Concomitant]
     Route: 048
  22. DEXAMETHASONE [Concomitant]
     Active Substance: DEXAMETHASONE
     Dosage: UNK
     Route: 048
  23. LOPERAMID STADA [Concomitant]
  24. EMEND [Concomitant]
     Active Substance: APREPITANT
     Dosage: 125 MILLIGRAM
     Route: 048
  25. EMEND [Concomitant]
     Active Substance: APREPITANT
     Dosage: 80 MILLIGRAM
     Route: 048
  26. CALCIUM CARBONATE\CHOLECALCIFEROL [Concomitant]
     Active Substance: CALCIUM CARBONATE\CHOLECALCIFEROL
     Route: 048
  27. AMPHO-MORONAL [Concomitant]
     Active Substance: AMPHOTERICIN B
  28. INNOHEP [Concomitant]
     Active Substance: TINZAPARIN SODIUM
  29. DULCOLAX NP [Concomitant]

REACTIONS (6)
  - Immune-mediated pancytopenia [Unknown]
  - Leukopenia [Recovered/Resolved]
  - Immune thrombocytopenia [Not Recovered/Not Resolved]
  - Haemolytic anaemia [Recovered/Resolved]
  - Pulmonary embolism [Unknown]
  - Malignant neoplasm progression [Unknown]

NARRATIVE: CASE EVENT DATE: 20240301
